FAERS Safety Report 4751244-0 (Version None)
Quarter: 2005Q3

REPORT INFORMATION
  Report Type: 
  Country: None (occurrence: None)
  Receive Date: 20050823
  Receipt Date: 20050823
  Transmission Date: 20060218
  Serious: Yes (Disabling)
  Sender: FDA-Public Use
  Company Number: None

PATIENT
  Sex: Male
  Weight: 83.9154 kg

DRUGS (2)
  1. CIPROFLOXACIN [Suspect]
     Indication: CYSTITIS
     Dosage: TWO TABLETS DAILY   FOR TEN DAYS  PO
     Route: 048
     Dates: start: 20050125, end: 20050204
  2. CIPROFLOXACIN [Suspect]
     Indication: CYSTITIS
     Dosage: TWO TABLETS DAILY   FOR TEN DAYS  PO
     Route: 048
     Dates: start: 20050713, end: 20050722

REACTIONS (4)
  - DIFFICULTY IN WALKING [None]
  - INFECTION [None]
  - NEUROPATHY PERIPHERAL [None]
  - TENDON DISORDER [None]
